FAERS Safety Report 9581221 (Version 1)
Quarter: 2013Q4

REPORT INFORMATION
  Report Type: Spontaneous
  Country: IT (occurrence: IT)
  Receive Date: 20131002
  Receipt Date: 20131002
  Transmission Date: 20140711
  Serious: Yes (Hospitalization)
  Sender: FDA-Public Use
  Company Number: PHHY2013IT108468

PATIENT
  Sex: Male

DRUGS (3)
  1. QUETIAPINE [Suspect]
     Indication: CONFUSIONAL STATE
     Dosage: 25 MG, UNK
     Route: 048
     Dates: start: 201305, end: 20130823
  2. MICARDIS [Concomitant]
     Indication: HYPERTENSION
     Dosage: 40 MG, UNK
  3. CARDIOASPIRIN [Concomitant]
     Indication: THROMBOSIS PROPHYLAXIS
     Dosage: 100 MG, UNK

REACTIONS (4)
  - Blood lactate dehydrogenase increased [Recovered/Resolved]
  - Blood bilirubin increased [Recovered/Resolved]
  - Haemolysis [Recovered/Resolved]
  - Anaemia macrocytic [Recovered/Resolved]
